FAERS Safety Report 6544038-7 (Version None)
Quarter: 2010Q1

REPORT INFORMATION
  Report Type: 
  Country: None (occurrence: None)
  Receive Date: 20100120
  Receipt Date: 20100113
  Transmission Date: 20100710
  Serious: Yes (Hospitalization)
  Sender: FDA-Public Use
  Company Number: JP-PFIZER INC-2010005774

PATIENT
  Age: 75 Year
  Sex: Female

DRUGS (3)
  1. MEDROXYPROGESTERONE AND MEDROXYPROGESTERONE ACETATE [Suspect]
     Indication: BREAST CANCER METASTATIC
     Dosage: 600 MG, 1X/DAY
     Route: 048
     Dates: start: 20090401
  2. INSULIN [Concomitant]
     Indication: TYPE 2 DIABETES MELLITUS
     Dosage: 27 UNITS, UNK
     Dates: start: 20030101
  3. INSULIN [Concomitant]
     Dosage: 64 UNITS, UNK

REACTIONS (2)
  - CONDITION AGGRAVATED [None]
  - INSULIN RESISTANCE [None]
